FAERS Safety Report 14477050 (Version 1)
Quarter: 2018Q1

REPORT INFORMATION
  Report Type: Report from Study
  Country: US (occurrence: US)
  Receive Date: 20180201
  Receipt Date: 20180201
  Transmission Date: 20180509
  Serious: No
  Sender: FDA-Public Use
  Company Number: US-EXELIXIS-CABO-17009984

PATIENT
  Sex: Male

DRUGS (15)
  1. METOPROLOL. [Concomitant]
     Active Substance: METOPROLOL
  2. FENOFIBRATE. [Concomitant]
     Active Substance: FENOFIBRATE
  3. LISINOPRIL. [Concomitant]
     Active Substance: LISINOPRIL
  4. NOVOLOG [Concomitant]
     Active Substance: INSULIN ASPART
  5. CABOMETYX [Suspect]
     Active Substance: CABOZANTINIB S-MALATE
     Indication: RENAL CANCER
     Dosage: 60 MG, QD
     Route: 048
     Dates: start: 20170701
  6. ASPIRIN. [Concomitant]
     Active Substance: ASPIRIN
  7. HYDROCODONE [Concomitant]
     Active Substance: HYDROCODONE
  8. LANTUS [Concomitant]
     Active Substance: INSULIN GLARGINE
  9. LOPERAMIDE [Concomitant]
     Active Substance: LOPERAMIDE
  10. BYSTOLIC [Concomitant]
     Active Substance: NEBIVOLOL HYDROCHLORIDE
  11. CABOMETYX [Suspect]
     Active Substance: CABOZANTINIB S-MALATE
     Indication: METASTASES TO BONE
  12. CIALIS [Concomitant]
     Active Substance: TADALAFIL
  13. HUMALOG [Concomitant]
     Active Substance: INSULIN LISPRO
  14. OMEPRAZOLE. [Concomitant]
     Active Substance: OMEPRAZOLE
  15. ALPRAZOLAM. [Concomitant]
     Active Substance: ALPRAZOLAM

REACTIONS (5)
  - Decreased appetite [Unknown]
  - Arthralgia [Unknown]
  - Bone pain [Unknown]
  - Photosensitivity reaction [Unknown]
  - Fatigue [Not Recovered/Not Resolved]
